FAERS Safety Report 5923100-3 (Version None)
Quarter: 2008Q4

REPORT INFORMATION
  Report Type: 
  Country: None (occurrence: None)
  Receive Date: 20081018
  Receipt Date: 20081007
  Transmission Date: 20090506
  Serious: Yes (Other)
  Sender: FDA-Public Use
  Company Number: US-PFIZER INC-2008085794

PATIENT
  Sex: Male
  Weight: 4.2 kg

DRUGS (2)
  1. DILANTIN [Suspect]
     Indication: EPILEPSY
     Dosage: TEXT:400
     Route: 064
     Dates: start: 20000319
  2. SYNTHROID [Concomitant]
     Indication: HYPERTHYROIDISM
     Route: 064
     Dates: start: 20000319

REACTIONS (4)
  - DRUG EXPOSURE DURING PREGNANCY [None]
  - FACIAL PALSY [None]
  - GASTROINTESTINAL DISORDER [None]
  - JOINT DISLOCATION [None]
